FAERS Safety Report 8767121 (Version 2)
Quarter: 2012Q4

REPORT INFORMATION
  Report Type: 
  Country: US (occurrence: US)
  Receive Date: 20120830
  Receipt Date: 20120905
  Transmission Date: 20130627
  Serious: Yes (Other)
  Sender: FDA-Public Use
  Company Number: US-PFIZER INC-2012211196

PATIENT
  Age: 13 Month
  Sex: Male

DRUGS (3)
  1. XYNTHA [Suspect]
     Indication: HAEMOPHILIA
     Dosage: 250 IU, as needed
     Dates: start: 2012
  2. AMICAR [Concomitant]
     Indication: HAEMOPHILIA
     Dosage: 3 ml, UNK
  3. AMICAR [Concomitant]
     Dosage: 1.5 ml, every 6hrs for 12 days

REACTIONS (3)
  - Factor VIII deficiency [Unknown]
  - Syringe issue [Unknown]
  - Liquid product physical issue [Unknown]
